FAERS Safety Report 5373897-9 (Version None)
Quarter: 2007Q2

REPORT INFORMATION
  Report Type: 
  Country: None (occurrence: None)
  Receive Date: 20070628
  Receipt Date: 20070621
  Transmission Date: 20071010
  Serious: Yes (Hospitalization)
  Sender: FDA-Public Use
  Company Number: FR-PFIZER INC-2007051051

PATIENT
  Age: 69 Year
  Sex: Male
  Weight: 80 kg

DRUGS (11)
  1. TRIFLUCAN [Suspect]
     Indication: PROPHYLAXIS
     Route: 048
     Dates: start: 20070418, end: 20070520
  2. EZETIMIBE [Suspect]
     Indication: CORONARY ARTERY BYPASS
     Dosage: TEXT:EVERY DAY TDD:10 MG
     Route: 048
     Dates: start: 20070225, end: 20070523
  3. CORTANCYL [Concomitant]
     Route: 048
     Dates: start: 20070418, end: 20070505
  4. ASPEGIC 325 [Concomitant]
  5. OMEPRAZOLE [Concomitant]
  6. LASIX [Concomitant]
  7. DIFFU K [Concomitant]
  8. ATENOLOL [Concomitant]
  9. ATACAND [Concomitant]
  10. ZELITREX [Concomitant]
     Dates: start: 20070418, end: 20070505
  11. SEROPRAM [Concomitant]

REACTIONS (5)
  - ALANINE AMINOTRANSFERASE INCREASED [None]
  - ASTHENIA [None]
  - BLOOD ALKALINE PHOSPHATASE INCREASED [None]
  - GAMMA-GLUTAMYLTRANSFERASE INCREASED [None]
  - JAUNDICE [None]
